FAERS Safety Report 13292824 (Version 15)
Quarter: 2018Q3

REPORT INFORMATION
  Report Type: Spontaneous
  Country: FR (occurrence: FR)
  Receive Date: 20170303
  Receipt Date: 20180703
  Transmission Date: 20181010
  Serious: Yes (Death, Hospitalization, Other)
  Sender: FDA-Public Use
  Company Number: FR-ASTRAZENECA-2017SE23099

PATIENT
  Age: 71 Year
  Sex: Male
  Weight: 113.4 kg

DRUGS (28)
  1. QUESTRAN [Suspect]
     Active Substance: CHOLESTYRAMINE
     Indication: PRODUCT USE IN UNAPPROVED INDICATION
     Route: 048
     Dates: start: 20161216, end: 20170119
  2. FUROSEMIDE. [Concomitant]
     Active Substance: FUROSEMIDE
     Indication: PRODUCT USE IN UNAPPROVED INDICATION
     Route: 065
  3. POLARAMINE [Concomitant]
     Active Substance: DEXCHLORPHENIRAMINE MALEATE
  4. LINEZOLID. [Suspect]
     Active Substance: LINEZOLID
     Indication: SKIN INFECTION
     Route: 048
     Dates: start: 20161222, end: 20170110
  5. LINEZOLID. [Suspect]
     Active Substance: LINEZOLID
     Indication: SKIN INFECTION
     Dosage: LINEZOLIDE ARROW
     Route: 048
     Dates: start: 20161222, end: 20170110
  6. ULTRAVIST [Suspect]
     Active Substance: IOPROMIDE
     Indication: CHEST SCAN
     Dosage: 370 MG OF IODINE PER ML
     Route: 042
     Dates: start: 20170116, end: 20170116
  7. UMULINE ZINC COMPOSE [Concomitant]
     Active Substance: INSULIN HUMAN
     Indication: PRODUCT USE IN UNAPPROVED INDICATION
  8. LOPERAMIDE HYDROCHLORIDE. [Concomitant]
     Active Substance: LOPERAMIDE HYDROCHLORIDE
  9. SYMBICORT [Suspect]
     Active Substance: BUDESONIDE\FORMOTEROL FUMARATE DIHYDRATE
     Indication: PRODUCT USE IN UNAPPROVED INDICATION
     Dosage: 400/12 1 INHALATION PER DAY
     Route: 055
     Dates: start: 20161220, end: 20170119
  10. CUBICIN [Suspect]
     Active Substance: DAPTOMYCIN
     Indication: PRODUCT USE IN UNAPPROVED INDICATION
     Route: 042
     Dates: start: 20170110, end: 20170201
  11. RACECADOTRIL [Suspect]
     Active Substance: RACECADOTRIL
     Indication: PRODUCT USE IN UNAPPROVED INDICATION
     Route: 048
     Dates: start: 20161209, end: 20170119
  12. NEFOPAM [Suspect]
     Active Substance: NEFOPAM
     Indication: PRODUCT USED FOR UNKNOWN INDICATION
     Route: 065
     Dates: start: 20161202, end: 20170119
  13. DUPHALAC [Concomitant]
     Active Substance: LACTULOSE
     Indication: PRODUCT USE IN UNAPPROVED INDICATION
  14. KARDEGIC [Concomitant]
     Active Substance: ASPIRIN DL-LYSINE
     Indication: PRODUCT USE IN UNAPPROVED INDICATION
  15. TRAMADOL PARACETAMOL [Suspect]
     Active Substance: ACETAMINOPHEN\TRAMADOL
     Indication: PRODUCT USE IN UNAPPROVED INDICATION
     Dosage: 37.5/325 MG, 2 TABLETS FOUR TIMES A DAY
     Route: 048
     Dates: start: 20161201, end: 20170119
  16. DIFFU?K [Concomitant]
     Active Substance: POTASSIUM CHLORIDE
     Indication: PRODUCT USE IN UNAPPROVED INDICATION
     Route: 065
  17. LOVENOX [Concomitant]
     Active Substance: ENOXAPARIN SODIUM
     Indication: PRODUCT USED FOR UNKNOWN INDICATION
     Dates: end: 20170114
  18. LANTUS [Concomitant]
     Active Substance: INSULIN GLARGINE
     Indication: PRODUCT USE IN UNAPPROVED INDICATION
  19. BUDESONIDE. [Suspect]
     Active Substance: BUDESONIDE
     Indication: PRODUCT USED FOR UNKNOWN INDICATION
     Route: 055
     Dates: start: 20161220, end: 20170119
  20. NEFOPAM [Suspect]
     Active Substance: NEFOPAM
     Indication: PRODUCT USE IN UNAPPROVED INDICATION
     Route: 042
     Dates: start: 20161202, end: 20170119
  21. RIFADIN [Suspect]
     Active Substance: RIFAMPIN
     Indication: PRODUCT USED FOR UNKNOWN INDICATION
     Route: 065
  22. FUROSEMIDE. [Concomitant]
     Active Substance: FUROSEMIDE
  23. VANCOMYCIN HYDROCHLORIDE. [Suspect]
     Active Substance: VANCOMYCIN HYDROCHLORIDE
     Indication: PRODUCT USE IN UNAPPROVED INDICATION
     Route: 065
  24. PRIMPERAN [Suspect]
     Active Substance: METOCLOPRAMIDE HYDROCHLORIDE
     Indication: PRODUCT USE IN UNAPPROVED INDICATION
     Route: 048
     Dates: start: 20161224, end: 20170119
  25. PANTOPRAZOLE [Suspect]
     Active Substance: PANTOPRAZOLE
     Indication: PRODUCT USE IN UNAPPROVED INDICATION
     Route: 042
     Dates: start: 20161225, end: 20170119
  26. PIPERACILLIN AND TAZOBACTAM [Suspect]
     Active Substance: PIPERACILLIN SODIUM\TAZOBACTAM SODIUM
     Indication: SKIN INFECTION
     Route: 042
     Dates: start: 20161204, end: 20170130
  27. RACECADOTRIL [Suspect]
     Active Substance: RACECADOTRIL
     Indication: PRODUCT USED FOR UNKNOWN INDICATION
     Route: 065
     Dates: start: 20161209, end: 20170119
  28. LOPERAMIDE [Concomitant]
     Active Substance: LOPERAMIDE
     Indication: PRODUCT USE IN UNAPPROVED INDICATION

REACTIONS (18)
  - Rectal haemorrhage [Fatal]
  - Pulmonary interstitial emphysema syndrome [Fatal]
  - Hepatic encephalopathy [Fatal]
  - Dyspnoea [Fatal]
  - Eosinophilia [Fatal]
  - Generalised oedema [Fatal]
  - Death [Fatal]
  - Alveolar lung disease [Fatal]
  - Restlessness [Fatal]
  - Rash maculo-papular [Fatal]
  - Diffuse alveolar damage [Fatal]
  - Thrombocytopenia [Fatal]
  - Glomerular filtration rate decreased [Fatal]
  - Eosinophilic pneumonia [Fatal]
  - Eczema [Fatal]
  - Hyperammonaemia [Fatal]
  - Acute kidney injury [Fatal]
  - Sepsis [Fatal]

NARRATIVE: CASE EVENT DATE: 20161227
